FAERS Safety Report 5725229-1 (Version None)
Quarter: 2008Q2

REPORT INFORMATION
  Report Type: 
  Country: None (occurrence: None)
  Receive Date: 20080501
  Receipt Date: 20080429
  Transmission Date: 20081010
  Serious: Yes (Hospitalization)
  Sender: FDA-Public Use
  Company Number: B0518837A

PATIENT
  Age: 64 Year
  Sex: Male

DRUGS (3)
  1. AVANDAMET [Suspect]
     Indication: DIABETES MELLITUS
     Dosage: 2004MG PER DAY
     Route: 048
     Dates: start: 20070219, end: 20080414
  2. PRITORPLUS [Concomitant]
     Route: 048
  3. SOLOSA [Concomitant]
     Route: 048

REACTIONS (1)
  - PAPILLOEDEMA [None]
